FAERS Safety Report 8238781-1 (Version None)
Quarter: 2012Q1

REPORT INFORMATION
  Report Type: 
  Country: None (occurrence: None)
  Receive Date: 20120327
  Receipt Date: 20120319
  Transmission Date: 20120608
  Serious: Yes (Hospitalization)
  Sender: FDA-Public Use
  Company Number: US-ELI_LILLY_AND_COMPANY-US201102002677

PATIENT
  Sex: Female

DRUGS (10)
  1. FORTEO [Suspect]
     Dosage: 20 UG, QD
     Route: 065
  2. FORTEO [Suspect]
     Dosage: 20 UG, DAILY (1/D)
     Route: 065
  3. FORTEO [Suspect]
     Dosage: 20 UG, QD
     Route: 065
     Dates: end: 20111119
  4. FORTEO [Suspect]
     Indication: OSTEOPOROSIS
     Dosage: 20 UG, DAILY (1/D)
     Route: 065
     Dates: start: 20101101
  5. IRON [Concomitant]
  6. VASOTEC [Concomitant]
  7. LASIX [Concomitant]
  8. FORTEO [Suspect]
     Dosage: 20 UG, QD
     Route: 065
  9. FORTEO [Suspect]
     Dosage: 20 UG, QOD
     Route: 065
  10. POTASSIUM [Concomitant]

REACTIONS (7)
  - INTENTIONAL DRUG MISUSE [None]
  - FRACTURE DELAYED UNION [None]
  - BURSA DISORDER [None]
  - ABDOMINAL DISCOMFORT [None]
  - INJECTION SITE PAIN [None]
  - CALCINOSIS [None]
  - MASS [None]
